FAERS Safety Report 11762735 (Version 1)
Quarter: 2015Q4

REPORT INFORMATION
  Report Type: Spontaneous
  Country: GB (occurrence: GB)
  Receive Date: 20151120
  Receipt Date: 20151120
  Transmission Date: 20160304
  Serious: Yes (Other)
  Sender: FDA-Public Use
  Company Number: GB-RARE DISEASE THERAPEUTICS, INC.-1044515

PATIENT
  Age: 32 Year
  Sex: Female

DRUGS (5)
  1. FOLIC ACID. [Concomitant]
     Active Substance: FOLIC ACID
  2. PURIXAN [Suspect]
     Active Substance: MERCAPTOPURINE
     Indication: INFLAMMATORY BOWEL DISEASE
  3. ALLOPURINOL. [Suspect]
     Active Substance: ALLOPURINOL
  4. CICLOSPORIN [Concomitant]
     Active Substance: CYCLOSPORINE
  5. FERROUS FUMARATE [Concomitant]
     Active Substance: FERROUS FUMARATE

REACTIONS (4)
  - Exposure during pregnancy [Recovered/Resolved]
  - Off label use [None]
  - Caesarean section [Recovered/Resolved]
  - Premature delivery [Recovered/Resolved]
